FAERS Safety Report 6164446-6 (Version None)
Quarter: 2009Q2

REPORT INFORMATION
  Report Type: 
  Country: None (occurrence: None)
  Receive Date: 20090421
  Receipt Date: 20090409
  Transmission Date: 20091009
  Serious: Yes (Other)
  Sender: FDA-Public Use
  Company Number: SPV1-2009-00646

PATIENT
  Age: 53 Year
  Sex: Female
  Weight: 68.9 kg

DRUGS (4)
  1. LIALDA [Suspect]
     Indication: COLITIS
     Dosage: 1.2 G TO 2.4 G DAILY, ORAL
     Route: 048
     Dates: start: 20080101
  2. BENICAR HCT [Concomitant]
  3. NEXIUM [Concomitant]
  4. CLIDINIUM (CLIDINIUM) [Concomitant]

REACTIONS (3)
  - CARTILAGE ATROPHY [None]
  - HYPOAESTHESIA [None]
  - SPINAL CORD COMPRESSION [None]
